FAERS Safety Report 22665077 (Version 2)
Quarter: 2024Q1

REPORT INFORMATION
  Report Type: Spontaneous
  Country: JP (occurrence: JP)
  Receive Date: 20230703
  Receipt Date: 20240108
  Transmission Date: 20240410
  Serious: Yes (Other)
  Sender: FDA-Public Use
  Company Number: JP-SUN PHARMACEUTICAL INDUSTRIES LTD-2023RR-381067

PATIENT
  Age: 40 Year
  Sex: Female

DRUGS (6)
  1. ENALAPRIL [Suspect]
     Active Substance: ENALAPRIL
     Indication: Malignant hypertension
     Dosage: UNK
     Route: 065
  2. ENALAPRIL [Suspect]
     Active Substance: ENALAPRIL
     Indication: Thrombotic microangiopathy
  3. NICARDIPINE [Suspect]
     Active Substance: NICARDIPINE
     Indication: Malignant hypertension
     Dosage: UNK
     Route: 065
  4. NICARDIPINE [Suspect]
     Active Substance: NICARDIPINE
     Indication: Thrombotic microangiopathy
  5. ALISKIREN [Suspect]
     Active Substance: ALISKIREN
     Indication: Malignant hypertension
     Dosage: UNK
     Route: 065
  6. ALISKIREN [Suspect]
     Active Substance: ALISKIREN
     Indication: Thrombotic microangiopathy

REACTIONS (1)
  - Drug ineffective [Unknown]
